FAERS Safety Report 24338110 (Version 2)
Quarter: 2024Q3

REPORT INFORMATION
  Report Type: Report from Study
  Country: US (occurrence: US)
  Receive Date: 20240919
  Receipt Date: 20240920
  Transmission Date: 20241017
  Serious: Yes (Other)
  Sender: RANBAXY
  Company Number: US-SUN PHARMACEUTICAL INDUSTRIES LTD-2024R1-468692

PATIENT

DRUGS (3)
  1. DOXORUBICIN [Suspect]
     Active Substance: DOXORUBICIN
     Indication: T-cell type acute leukaemia
     Dosage: UNK
     Route: 064
  2. PREDNISONE [Suspect]
     Active Substance: PREDNISONE
     Indication: T-cell type acute leukaemia
     Dosage: UNK
     Route: 064
  3. VINCRISTINE [Suspect]
     Active Substance: VINCRISTINE
     Indication: T-cell type acute leukaemia
     Dosage: UNK
     Route: 064

REACTIONS (2)
  - Foetal exposure during pregnancy [Unknown]
  - Premature baby [Unknown]
